FAERS Safety Report 6474202-7 (Version None)
Quarter: 2009Q4

REPORT INFORMATION
  Report Type: 
  Country: None (occurrence: None)
  Receive Date: 20091204
  Receipt Date: 20091124
  Transmission Date: 20100525
  Serious: Yes (Other)
  Sender: FDA-Public Use
  Company Number: US-PFIZER INC-2009271761

PATIENT
  Sex: Female
  Weight: 113 kg

DRUGS (5)
  1. ZOLOFT [Suspect]
     Indication: ANXIETY
     Dosage: 50 MG, 1X/DAY
     Route: 048
     Dates: start: 20090802
  2. ZOLOFT [Suspect]
     Dosage: 50 MG, UNK
  3. PAXIL [Concomitant]
  4. PRILOSEC [Concomitant]
     Dosage: UNK
     Route: 048
  5. DESVENLAFAXINE [Concomitant]
     Dosage: UNK
     Dates: start: 20090510, end: 20090801

REACTIONS (4)
  - ANXIETY [None]
  - DISTURBANCE IN ATTENTION [None]
  - PSYCHIATRIC SYMPTOM [None]
  - SEROTONIN SYNDROME [None]
